FAERS Safety Report 10620314 (Version 5)
Quarter: 2015Q2

REPORT INFORMATION
  Report Type: Spontaneous
  Country: BR (occurrence: BR)
  Receive Date: 20141202
  Receipt Date: 20150401
  Transmission Date: 20150821
  Serious: Yes (Other)
  Sender: FDA-Public Use
  Company Number: BR-PFIZER INC-2014327106

PATIENT
  Age: 64 Year
  Sex: Female
  Weight: 64 kg

DRUGS (26)
  1. LYRICA [Suspect]
     Active Substance: PREGABALIN
     Indication: PAIN
     Dosage: 75 MG (ONE CAPSULE), DAILY
     Route: 048
     Dates: start: 20141023
  2. HYDROLYZED COLLAGEN [Concomitant]
     Dosage: UNK
  3. LOSARTAN [Concomitant]
     Active Substance: LOSARTAN
     Dosage: UNK
  4. HYDROCHLOROTHIAZIDE. [Concomitant]
     Active Substance: HYDROCHLOROTHIAZIDE
     Dosage: 25 MG, 1X/DAY
  5. VITAMIN D3 [Concomitant]
     Active Substance: CHOLECALCIFEROL
     Dosage: 2000 IU, UNK
  6. ARGENTUM NITRICUM [Concomitant]
     Dosage: 200CH/30G
  7. ENALAPRIL [Concomitant]
     Active Substance: ENALAPRIL
     Dosage: UNK
  8. SIMVASTATIN. [Suspect]
     Active Substance: SIMVASTATIN
     Dosage: 20 MG, DAILY
  9. RIVOTRIL [Concomitant]
     Active Substance: CLONAZEPAM
     Dosage: ^2/1^ OF 50 AT NIGHT
  10. NISULID [Concomitant]
     Active Substance: NIMESULIDE
     Dosage: UNK
  11. LYRICA [Suspect]
     Active Substance: PREGABALIN
     Indication: RHEUMATIC DISORDER
  12. LIVIAL [Concomitant]
     Active Substance: TIBOLONE
     Dosage: UNK
  13. OMEGA 3 [Concomitant]
     Active Substance: OMEGA-3 FATTY ACIDS
     Dosage: 1000 MG, UNK
  14. ANALGESIN (ASPIRIN) [Concomitant]
     Active Substance: ASPIRIN
     Dosage: 100 MG, UNK
  15. PRISTIQ EXTENDED RELEASE [Concomitant]
     Active Substance: DESVENLAFAXINE SUCCINATE
     Indication: DEPRESSION
     Dosage: 25 MG (HALF OF A 50MG TABLET), DAILY
     Route: 048
     Dates: start: 2014, end: 201411
  16. NIMESULIDE [Concomitant]
     Active Substance: NIMESULIDE
     Indication: PAIN
     Dosage: ONCE
  17. SERTRALINE HYDROCHLORIDE. [Concomitant]
     Active Substance: SERTRALINE HYDROCHLORIDE
     Dosage: 100 MG, UNK
  18. PRISTIQ EXTENDED RELEASE [Concomitant]
     Active Substance: DESVENLAFAXINE SUCCINATE
     Indication: EMOTIONAL DISORDER
     Dosage: 50 MG, UNK
     Route: 048
     Dates: start: 201409, end: 2014
  19. RIVOTRIL [Concomitant]
     Active Substance: CLONAZEPAM
     Indication: ANXIETY
     Dosage: 1 TABLET, DAILY
     Dates: start: 1999
  20. RIVOTRIL [Concomitant]
     Active Substance: CLONAZEPAM
     Dosage: 2MG, ^HALF^
  21. LOSARTAN POTASSIUM. [Concomitant]
     Active Substance: LOSARTAN POTASSIUM
     Dosage: UNK, 1X/DAY
  22. OSTEOBAN [Concomitant]
     Dosage: ONCE (UNSPECIFIED FREQUENCY)
  23. ZOLOFT [Concomitant]
     Active Substance: SERTRALINE HYDROCHLORIDE
     Dosage: UNK
  24. ATENOL [Concomitant]
     Active Substance: ATENOLOL
     Dosage: 25X1/ ^ONCE^
  25. OMEPRAZOLE. [Concomitant]
     Active Substance: OMEPRAZOLE
     Indication: GASTRITIS
     Dosage: UNK UNK, AS NEEDED
  26. BROMAZEPAM [Concomitant]
     Active Substance: BROMAZEPAM

REACTIONS (9)
  - Intervertebral disc protrusion [Unknown]
  - Drug ineffective [Unknown]
  - Nodule [Unknown]
  - Osteopenia [Unknown]
  - Anaemia [Unknown]
  - Bone marrow disorder [Unknown]
  - Spinal pain [Unknown]
  - Exostosis [Unknown]
  - Product use issue [Unknown]

NARRATIVE: CASE EVENT DATE: 20141023
